FAERS Safety Report 5692081-2 (Version None)
Quarter: 2008Q2

REPORT INFORMATION
  Report Type: 
  Country: None (occurrence: None)
  Receive Date: 20080402
  Receipt Date: 20080128
  Transmission Date: 20081010
  Serious: Yes (Hospitalization)
  Sender: FDA-Public Use
  Company Number: JP-PFIZER INC-2007092707

PATIENT
  Sex: Female
  Weight: 48 kg

DRUGS (3)
  1. AROMASIN [Suspect]
     Indication: BREAST CANCER
     Route: 048
     Dates: start: 20051220, end: 20071101
  2. AMLODIN [Suspect]
     Indication: HYPERTENSION
     Dosage: DAILY DOSE:2.5MG-FREQ:DAILY
     Route: 048
  3. HYALEIN [Concomitant]
     Indication: CATARACT

REACTIONS (1)
  - COLITIS ISCHAEMIC [None]
